FAERS Safety Report 4665017-0 (Version None)
Quarter: 2005Q2

REPORT INFORMATION
  Report Type: 
  Country: None (occurrence: None)
  Receive Date: 20050518
  Receipt Date: 20050518
  Transmission Date: 20051028
  Serious: Yes (Life-Threatening, Hospitalization)
  Sender: FDA-Public Use
  Company Number: None

PATIENT
  Age: 70 Year
  Sex: Male
  Weight: 75 kg

DRUGS (5)
  1. LOVENOX [Suspect]
     Indication: ANTICOAGULANT THERAPY
     Dosage: 75 MG SQ Q 12 H
     Route: 058
     Dates: start: 20040730, end: 20040814
  2. LOVENOX [Suspect]
     Indication: ANTICOAGULANT THERAPY
     Dosage: 75 MG SQ Q 12 H
     Route: 058
     Dates: start: 20040817, end: 20040826
  3. HEPARIN [Suspect]
     Indication: ANTICOAGULANT THERAPY
     Dosage: PROTOCOL
     Dates: start: 20040814, end: 20040815
  4. ARGATROBAN [Concomitant]
  5. COUMADIN [Concomitant]

REACTIONS (5)
  - DRUG HYPERSENSITIVITY [None]
  - HEPARIN-INDUCED THROMBOCYTOPENIA [None]
  - INTERNATIONAL NORMALISED RATIO INCREASED [None]
  - PLATELET AGGREGATION INCREASED [None]
  - RASH [None]
